FAERS Safety Report 9830952 (Version 2)
Quarter: 2014Q1

REPORT INFORMATION
  Report Type: Spontaneous
  Country: US (occurrence: US)
  Receive Date: 20140120
  Receipt Date: 20140220
  Transmission Date: 20141002
  Serious: No
  Sender: FDA-Public Use
  Company Number: US-GILEAD-2014-0092399

PATIENT
  Age: 42 Year
  Sex: Male

DRUGS (2)
  1. TRUVADA [Suspect]
     Indication: HIV INFECTION
     Dosage: UNK, QOD
     Route: 065
     Dates: start: 201310
  2. TRUVADA [Suspect]
     Dosage: 500 MG, UNK
     Route: 065

REACTIONS (2)
  - Underdose [Unknown]
  - Headache [Unknown]
